FAERS Safety Report 5335553-2 (Version None)
Quarter: 2007Q2

REPORT INFORMATION
  Report Type: 
  Country: None (occurrence: None)
  Receive Date: 20070522
  Receipt Date: 20070511
  Transmission Date: 20071010
  Serious: Yes (Hospitalization)
  Sender: FDA-Public Use
  Company Number: 2007BI009262

PATIENT
  Age: 54 Year
  Sex: Female

DRUGS (2)
  1. AVONEX [Suspect]
     Indication: MULTIPLE SCLEROSIS
     Dosage: 30 UG; QW; IM
     Route: 030
     Dates: start: 20030211, end: 20030901
  2. AVONEX [Suspect]
     Indication: MULTIPLE SCLEROSIS
     Dosage: 30 UG; QW; IM
     Route: 030
     Dates: start: 20030901

REACTIONS (12)
  - ARTHRALGIA [None]
  - CONTUSION [None]
  - DEPRESSION [None]
  - GAIT DISTURBANCE [None]
  - IMPAIRED DRIVING ABILITY [None]
  - INTERVERTEBRAL DISC DISORDER [None]
  - LOWER EXTREMITY MASS [None]
  - MULTIPLE SCLEROSIS RELAPSE [None]
  - PAIN [None]
  - ROAD TRAFFIC ACCIDENT [None]
  - THERMAL BURN [None]
  - TREATMENT NONCOMPLIANCE [None]
